FAERS Safety Report 15148520 (Version 3)
Quarter: 2019Q3

REPORT INFORMATION
  Report Type: Report from Study
  Country: CA (occurrence: CA)
  Receive Date: 20180716
  Receipt Date: 20190926
  Transmission Date: 20191004
  Serious: Yes (Hospitalization, Other)
  Sender: FDA-Public Use
  Company Number: CA-JNJFOC-20180715535

PATIENT
  Age: 7 Decade
  Sex: Female
  Weight: 55 kg

DRUGS (2)
  1. BABY ASPIRIN [Concomitant]
     Active Substance: ASPIRIN
     Indication: BLOOD PRESSURE ABNORMAL
  2. SIMPONI [Suspect]
     Active Substance: GOLIMUMAB
     Indication: ANKYLOSING SPONDYLITIS
     Route: 058
     Dates: start: 20151118

REACTIONS (2)
  - Cardiac operation [Recovered/Resolved]
  - Lung neoplasm [Recovered/Resolved]

NARRATIVE: CASE EVENT DATE: 2016
